FAERS Safety Report 25416482 (Version 2)
Quarter: 2025Q2

REPORT INFORMATION
  Report Type: Report from Study
  Country: BE (occurrence: BE)
  Receive Date: 20250610
  Receipt Date: 20250611
  Transmission Date: 20250717
  Serious: Yes (Hospitalization)
  Sender: ABBVIE
  Company Number: BE-ABBVIE-6317986

PATIENT
  Age: 70 Year
  Sex: Female

DRUGS (1)
  1. FOSCARBIDOPA\FOSLEVODOPA [Suspect]
     Active Substance: FOSCARBIDOPA\FOSLEVODOPA
     Indication: Parkinson^s disease
     Route: 058

REACTIONS (6)
  - Scoliosis [Unknown]
  - Dyskinesia [Recovered/Resolved]
  - Back pain [Unknown]
  - Feeling abnormal [Unknown]
  - On and off phenomenon [Recovered/Resolved]
  - Mobility decreased [Recovered/Resolved]
